FAERS Safety Report 18210438 (Version 1)
Quarter: 2020Q3

REPORT INFORMATION
  Report Type: Spontaneous
  Country: IN (occurrence: IN)
  Receive Date: 20200829
  Receipt Date: 20200829
  Transmission Date: 20201103
  Serious: Yes (Hospitalization, Other)
  Sender: FDA-Public Use
  Company Number: IN-MICRO LABS LIMITED-ML2020-02479

PATIENT
  Age: 51 Year
  Sex: Male

DRUGS (6)
  1. ETHIONAMIDE [Concomitant]
     Active Substance: ETHIONAMIDE
     Indication: PULMONARY TUBERCULOSIS
     Dosage: 1 GM/DAY
  2. PYRIDOXINE [Concomitant]
     Active Substance: PYRIDOXINE
     Indication: PULMONARY TUBERCULOSIS
     Dosage: 20 MG/DAY
  3. ETHAMBUTOL [Concomitant]
     Active Substance: ETHAMBUTOL HYDROCHLORIDE
     Indication: PULMONARY TUBERCULOSIS
     Dosage: 1.2 G/DAY
  4. LEVOFLOXACIN. [Suspect]
     Active Substance: LEVOFLOXACIN
     Indication: PULMONARY TUBERCULOSIS
     Dosage: 1 GM/DAY
  5. CYCLOSERINE. [Concomitant]
     Active Substance: CYCLOSERINE
     Indication: PULMONARY TUBERCULOSIS
     Dosage: 500 MG/DAY
  6. PANTOPRAZOLE [Concomitant]
     Active Substance: PANTOPRAZOLE
     Indication: PULMONARY TUBERCULOSIS
     Dosage: 40 MG/DAY

REACTIONS (3)
  - Neurotoxicity [Recovered/Resolved]
  - Toxic encephalopathy [Recovered/Resolved]
  - Myoclonus [Recovered/Resolved]
